FAERS Safety Report 5806170-2 (Version None)
Quarter: 2008Q3

REPORT INFORMATION
  Report Type: 
  Country: None (occurrence: None)
  Receive Date: 20080710
  Receipt Date: 20080707
  Transmission Date: 20090109
  Serious: Yes (Other)
  Sender: FDA-Public Use
  Company Number: US-BRISTOL-MYERS SQUIBB COMPANY-14139216

PATIENT
  Age: 61 Year
  Sex: Male

DRUGS (1)
  1. ABILIFY [Suspect]
     Indication: BIPOLAR I DISORDER

REACTIONS (3)
  - ABNORMAL BEHAVIOUR [None]
  - ACCIDENT [None]
  - HALLUCINATION [None]
